FAERS Safety Report 5191690-7 (Version None)
Quarter: 2006Q4

REPORT INFORMATION
  Report Type: 
  Country: None (occurrence: None)
  Receive Date: 20061226
  Receipt Date: 20061211
  Transmission Date: 20070319
  Serious: Yes (Life-Threatening, Hospitalization)
  Sender: FDA-Public Use
  Company Number: CA-AMGEN-US203375

PATIENT
  Sex: Male
  Weight: 74.9 kg

DRUGS (5)
  1. ENBREL [Suspect]
     Indication: RHEUMATOID ARTHRITIS
     Route: 058
     Dates: start: 20050921, end: 20061003
  2. METHOTREXATE [Concomitant]
  3. ARAVA [Concomitant]
  4. PLAQUENIL [Concomitant]
  5. ARTHROTEC [Concomitant]

REACTIONS (8)
  - ANAEMIA [None]
  - HAEMODIALYSIS [None]
  - HYPOALBUMINAEMIA [None]
  - RENAL FAILURE ACUTE [None]
  - SKIN ULCER [None]
  - STAPHYLOCOCCAL INFECTION [None]
  - STAPHYLOCOCCAL OSTEOMYELITIS [None]
  - STAPHYLOCOCCAL SEPSIS [None]
